FAERS Safety Report 6309204-4 (Version None)
Quarter: 2009Q3

REPORT INFORMATION
  Report Type: 
  Country: None (occurrence: None)
  Receive Date: 20090811
  Receipt Date: 20090803
  Transmission Date: 20100115
  Serious: Yes (Hospitalization, Other)
  Sender: FDA-Public Use
  Company Number: 2009AL005086

PATIENT
  Sex: Male
  Weight: 3.5 kg

DRUGS (7)
  1. HYDROCORTISONE 1%-P CREAM [Suspect]
     Indication: DRUG EXPOSURE DURING PREGNANCY
     Dosage: TRPL
     Route: 064
  2. SALBUTAMOL [Concomitant]
  3. AMINOPHYLLINE [Concomitant]
  4. MAGNESIUM SULFATE [Concomitant]
  5. CLARITHROMYCIN [Concomitant]
  6. AMOXICILLIN [Concomitant]
  7. ATROVENT [Concomitant]

REACTIONS (5)
  - CAESAREAN SECTION [None]
  - FOETAL DISTRESS SYNDROME [None]
  - FOETAL HEART RATE DECELERATION [None]
  - MATERNAL DRUGS AFFECTING FOETUS [None]
  - TACHYCARDIA FOETAL [None]
